FAERS Safety Report 19107246 (Version 1)
Quarter: 2021Q2

REPORT INFORMATION
  Report Type: Spontaneous
  Country: US (occurrence: US)
  Receive Date: 20210408
  Receipt Date: 20210408
  Transmission Date: 20210717
  Serious: Yes (Hospitalization)
  Sender: FDA-Public Use
  Company Number: None

PATIENT
  Age: 71 Year
  Sex: Male
  Weight: 107 kg

DRUGS (1)
  1. VANCOMYCIN (VANCOMYCIN HCL 1.5GM/VIL INJ) [Suspect]
     Active Substance: VANCOMYCIN
     Indication: OSTEOMYELITIS
     Route: 042
     Dates: start: 20210226, end: 20210401

REACTIONS (11)
  - Pyrexia [None]
  - Drug reaction with eosinophilia and systemic symptoms [None]
  - Hepatic enzyme increased [None]
  - Blood urea increased [None]
  - Eosinophilia [None]
  - Hepatic function abnormal [None]
  - Renal impairment [None]
  - Refusal of treatment by patient [None]
  - Rash [None]
  - Infection [None]
  - Blood creatinine increased [None]

NARRATIVE: CASE EVENT DATE: 20210402
